FAERS Safety Report 16306640 (Version 1)
Quarter: 2019Q2

REPORT INFORMATION
  Report Type: Report from Study
  Country: JP (occurrence: JP)
  Receive Date: 20190513
  Receipt Date: 20190513
  Transmission Date: 20190711
  Serious: Yes (Hospitalization)
  Sender: FDA-Public Use
  Company Number: JP-PFIZER INC-2019198821

PATIENT
  Age: 49 Year
  Sex: Male
  Weight: 46.7 kg

DRUGS (4)
  1. METHYLPREDNISOLONE. [Suspect]
     Active Substance: METHYLPREDNISOLONE
     Indication: ACUTE GRAFT VERSUS HOST DISEASE
     Dosage: 32 MG, 2X/DAY
     Route: 048
     Dates: start: 20190305, end: 20190311
  2. INCB039110 [Suspect]
     Active Substance: ITACITINIB
     Indication: ACUTE GRAFT VERSUS HOST DISEASE
     Dosage: 200 MG, 1X/DAY
     Route: 048
     Dates: start: 20190123, end: 20190220
  3. METHYLPREDNISOLONE. [Suspect]
     Active Substance: METHYLPREDNISOLONE
     Dosage: 24 MG, 2X/DAY
     Route: 048
     Dates: start: 20190311
  4. INCB039110 [Suspect]
     Active Substance: ITACITINIB
     Dosage: 100 MG, 1X/DAY
     Route: 048
     Dates: start: 20190220, end: 20190305

REACTIONS (1)
  - Abdominal pain [Not Recovered/Not Resolved]

NARRATIVE: CASE EVENT DATE: 20190310
